FAERS Safety Report 6992275-X (Version None)
Quarter: 2010Q3

REPORT INFORMATION
  Report Type: 
  Country: None (occurrence: None)
  Receive Date: 20100917
  Receipt Date: 20100913
  Transmission Date: 20110219
  Serious: Yes (Other)
  Sender: FDA-Public Use
  Company Number: BR-SANOFI-AVENTIS-2010SA048168

PATIENT
  Age: 70 Year
  Sex: Female
  Weight: 63 kg

DRUGS (4)
  1. AMARYL [Suspect]
     Indication: TYPE 2 DIABETES MELLITUS
     Route: 048
     Dates: end: 20070101
  2. AMARYL [Suspect]
     Dosage: 1 TABLET IN THE MORNING AND AT NIGHT ACCORDING TO NEED
     Route: 048
     Dates: start: 20070101
  3. AMARYL [Suspect]
     Dosage: 1 TABLET IN THE MORNING AND AT NIGHT ACCORDING TO NEED
     Route: 048
     Dates: start: 20100609
  4. GALVUS [Concomitant]
     Indication: TYPE 2 DIABETES MELLITUS
     Route: 048
     Dates: start: 20060101

REACTIONS (1)
  - CATARACT [None]
